FAERS Safety Report 21921474 (Version 1)
Quarter: 2023Q1

REPORT INFORMATION
  Report Type: Spontaneous
  Country: US (occurrence: None)
  Receive Date: 20230124
  Receipt Date: 20230124
  Transmission Date: 20230417
  Serious: Yes (Other)
  Sender: FDA-Public Use
  Company Number: None

PATIENT
  Age: 48 Year
  Sex: Female
  Weight: 81.65 kg

DRUGS (1)
  1. KANJINTI [Suspect]
     Active Substance: TRASTUZUMAB-ANNS
     Dosage: OTHER FREQUENCY : EVERY 21 DAYS;?
     Route: 042

REACTIONS (2)
  - Fatigue [None]
  - Rash pruritic [None]

NARRATIVE: CASE EVENT DATE: 20221013
